FAERS Safety Report 8965130 (Version 2)
Quarter: 2013Q2

REPORT INFORMATION
  Report Type: Spontaneous
  Country: US (occurrence: US)
  Receive Date: 20121213
  Receipt Date: 20130425
  Transmission Date: 20140414
  Serious: Yes (Life-Threatening, Hospitalization, Other)
  Sender: FDA-Public Use
  Company Number: PHHY2012US114202

PATIENT
  Age: 22 Year
  Sex: Male

DRUGS (6)
  1. METHADONE [Suspect]
     Indication: DRUG DEPENDENCE
     Dosage: 175 MG, BID
  2. METHADONE [Interacting]
     Dosage: 150 MG, QD (100 MG IN MORNING AND 50 MG IN EVENING)
  3. XANAX [Interacting]
     Dosage: 27 MG, UNK (54 TABLETS)
  4. ZOLOFT [Concomitant]
  5. ATIVAN [Concomitant]
     Dosage: 1 MG, UNK
  6. KLONOPIN [Concomitant]

REACTIONS (13)
  - Toxic encephalopathy [Recovered/Resolved]
  - Dyspnoea [Recovered/Resolved]
  - Loss of consciousness [Recovered/Resolved]
  - Stupor [Recovered/Resolved]
  - Mucosal dryness [Recovered/Resolved]
  - Miosis [Recovered/Resolved]
  - Respiratory rate decreased [Recovered/Resolved]
  - Hypopnoea [Recovered/Resolved]
  - Somnolence [Recovered/Resolved]
  - Bradycardia [Recovered/Resolved]
  - Hypotension [Recovered/Resolved]
  - Drug interaction [Recovered/Resolved]
  - Overdose [Recovered/Resolved]
